FAERS Safety Report 9437230 (Version 1)
Quarter: 2013Q3

REPORT INFORMATION
  Report Type: Spontaneous
  Country: US (occurrence: US)
  Receive Date: 20130802
  Receipt Date: 20130802
  Transmission Date: 20140515
  Serious: Yes (Other)
  Sender: FDA-Public Use
  Company Number: PHEH2013US016233

PATIENT
  Sex: 0

DRUGS (1)
  1. RECLAST [Suspect]
     Dosage: UNK UKN, UNK

REACTIONS (1)
  - Osteonecrosis of jaw [Unknown]
